FAERS Safety Report 8004668-2 (Version None)
Quarter: 2011Q4

REPORT INFORMATION
  Report Type: 
  Country: None (occurrence: None)
  Receive Date: 20111223
  Receipt Date: 20111216
  Transmission Date: 20120403
  Serious: Yes (Other)
  Sender: FDA-Public Use
  Company Number: US-JNJFOC-20111207865

PATIENT
  Sex: Female
  Weight: 77.11 kg

DRUGS (10)
  1. ASACOL [Concomitant]
     Indication: COLITIS
     Dates: start: 20060101
  2. LISINOPRIL [Concomitant]
     Indication: HYPERTENSION
     Dates: start: 20090101
  3. AMITRIPTYLINE [Concomitant]
     Indication: URINARY INCONTINENCE
     Dates: start: 20090101
  4. PATADAY [Concomitant]
     Indication: EYE DISORDER
  5. ALLERGY MEDICATION [Concomitant]
     Indication: SEASONAL ALLERGY
     Dates: start: 20010101
  6. REMICADE [Suspect]
     Indication: COLITIS ULCERATIVE
     Route: 042
     Dates: start: 20110711
  7. ADVAIR DISKUS 100/50 [Concomitant]
     Indication: ASTHMA
     Dates: start: 20040101
  8. PRED FORTE [Concomitant]
     Indication: EYE DISORDER
  9. SINGULAIR [Concomitant]
     Indication: ASTHMA
     Dates: start: 20040101
  10. DETROL LA [Concomitant]
     Indication: URINARY INCONTINENCE
     Dates: start: 20030101

REACTIONS (3)
  - COLITIS ULCERATIVE [None]
  - ARTHRITIS [None]
  - DYSPHONIA [None]
